FAERS Safety Report 13505283 (Version 1)
Quarter: 2017Q2

REPORT INFORMATION
  Report Type: Spontaneous
  Country: US (occurrence: US)
  Receive Date: 20170502
  Receipt Date: 20170502
  Transmission Date: 20170830
  Serious: No
  Sender: FDA-Public Use
  Company Number: US-BAYER-2017-080103

PATIENT
  Age: 70 Year
  Sex: Female
  Weight: 67.98 kg

DRUGS (2)
  1. FESOTERODINE [Concomitant]
     Active Substance: FESOTERODINE
     Dosage: UNK
  2. MIRALAX [Suspect]
     Active Substance: POLYETHYLENE GLYCOL 3350
     Indication: GASTROINTESTINAL DISORDER
     Dosage: UNK 17 GRAMS WITH 8 OZ OF WATER DOSE
     Route: 048
     Dates: end: 20170421

REACTIONS (3)
  - Product use issue [Unknown]
  - Product use issue [Unknown]
  - Drug ineffective [Unknown]

NARRATIVE: CASE EVENT DATE: 20170414
